FAERS Safety Report 6369959-X (Version None)
Quarter: 2009Q3

REPORT INFORMATION
  Report Type: 
  Country: None (occurrence: None)
  Receive Date: 20090923
  Receipt Date: 20070625
  Transmission Date: 20100115
  Serious: Yes (Hospitalization, Other)
  Sender: FDA-Public Use
  Company Number: US-ASTRAZENECA-2006UW02372

PATIENT
  Age: 13583 Day
  Sex: Female
  Weight: 88 kg

DRUGS (9)
  1. SEROQUEL [Suspect]
     Indication: HALLUCINATION, AUDITORY
     Dosage: 25MG, 100MG, 300MG (DISPENSED)
     Route: 048
     Dates: start: 20050208
  2. SEROQUEL [Suspect]
     Indication: DEPRESSION
     Dosage: 25MG, 100MG, 300MG (DISPENSED)
     Route: 048
     Dates: start: 20050208
  3. ABILIFY [Concomitant]
  4. GEODON [Concomitant]
  5. RISPERDAL [Concomitant]
     Dates: start: 20050306
  6. ZYPREXA [Concomitant]
     Dates: start: 20050604
  7. PAXIL [Concomitant]
     Route: 048
     Dates: start: 20020725
  8. BENZTROPINE MESYLATE [Concomitant]
     Dates: start: 20040314
  9. GLYBURIDE [Concomitant]
     Dates: start: 20051124

REACTIONS (2)
  - HYPERGLYCAEMIA [None]
  - TYPE 2 DIABETES MELLITUS [None]
